FAERS Safety Report 18032504 (Version 3)
Quarter: 2020Q3

REPORT INFORMATION
  Report Type: Spontaneous
  Country: US (occurrence: US)
  Receive Date: 20200716
  Receipt Date: 20200907
  Transmission Date: 20201103
  Serious: No
  Sender: FDA-Public Use
  Company Number: US-009507513-2007USA000105

PATIENT
  Age: 24 Year
  Sex: Female
  Weight: 100.23 kg

DRUGS (1)
  1. NEXPLANON [Suspect]
     Active Substance: ETONOGESTREL
     Indication: CONTRACEPTION
     Dosage: IMPLANT, 68 MG/ ONCE
     Route: 059
     Dates: start: 20200220, end: 20200616

REACTIONS (4)
  - Implant site swelling [Recovered/Resolved]
  - Implant site erythema [Recovered/Resolved]
  - Implant site discharge [Recovered/Resolved]
  - Device expulsion [Recovered/Resolved]

NARRATIVE: CASE EVENT DATE: 20200611
